FAERS Safety Report 16447400 (Version 1)
Quarter: 2019Q2

REPORT INFORMATION
  Report Type: Spontaneous
  Country: US (occurrence: US)
  Receive Date: 20190619
  Receipt Date: 20190619
  Transmission Date: 20190711
  Serious: Yes (Hospitalization, Other)
  Sender: FDA-Public Use
  Company Number: US-ZYDUS-037846

PATIENT
  Age: 15 Year
  Sex: Male

DRUGS (2)
  1. CIPROFLOXACIN. [Concomitant]
     Active Substance: CIPROFLOXACIN
     Indication: URINARY TRACT INFECTION
     Route: 065
  2. WARFARIN [Suspect]
     Active Substance: WARFARIN
     Indication: ANTICOAGULANT THERAPY
     Route: 065

REACTIONS (6)
  - Acute kidney injury [Recovered/Resolved]
  - IgA nephropathy [Recovered/Resolved]
  - Flank pain [Recovered/Resolved]
  - Tubulointerstitial nephritis [Recovered/Resolved]
  - Proteinuria [Recovered/Resolved]
  - Nephropathy [Recovered/Resolved]
